FAERS Safety Report 4872784-X (Version None)
Quarter: 2005Q4

REPORT INFORMATION
  Report Type: 
  Country: None (occurrence: None)
  Receive Date: 20051230
  Receipt Date: 20041214
  Transmission Date: 20060501
  Serious: Yes (Hospitalization)
  Sender: FDA-Public Use
  Company Number: US-SHR-04-025050

PATIENT
  Age: 78 Year
  Sex: Female

DRUGS (10)
  1. BETAPACE [Suspect]
     Indication: ATRIAL FIBRILLATION
     Dosage: SEE IMAGE
     Route: 048
     Dates: start: 20030118, end: 20040422
  2. BETAPACE [Suspect]
     Indication: ATRIAL FIBRILLATION
     Dosage: SEE IMAGE
     Route: 048
     Dates: start: 20040422, end: 20040424
  3. BETAPACE [Suspect]
     Indication: ATRIAL FIBRILLATION
     Dosage: SEE IMAGE
     Route: 048
     Dates: start: 20040101
  4. BETAPACE [Suspect]
     Indication: ATRIAL FIBRILLATION
     Dosage: SEE IMAGE
     Route: 048
     Dates: start: 20040424
  5. MAXZIDE [Concomitant]
  6. COUMADIN [Concomitant]
  7. PROTONIX [Concomitant]
  8. FOLIC ACID [Concomitant]
  9. VITAMIN B-12 [Concomitant]
  10. XANAX [Concomitant]

REACTIONS (5)
  - ATRIAL FIBRILLATION [None]
  - FEELING ABNORMAL [None]
  - FURUNCLE [None]
  - PHLEBITIS SUPERFICIAL [None]
  - THROAT IRRITATION [None]
